FAERS Safety Report 19990425 (Version 3)
Quarter: 2022Q1

REPORT INFORMATION
  Report Type: Spontaneous
  Country: JP (occurrence: JP)
  Receive Date: 20211025
  Receipt Date: 20220329
  Transmission Date: 20220423
  Serious: Yes (Disabling)
  Sender: FDA-Public Use
  Company Number: JP-NOVARTISPH-NVSJ2021JP017117

PATIENT
  Age: 71 Year
  Sex: Female

DRUGS (1)
  1. BEOVU [Suspect]
     Active Substance: BROLUCIZUMAB-DBLL
     Indication: Age-related macular degeneration
     Dosage: 6 MG
     Route: 031
     Dates: start: 20210927, end: 20210927

REACTIONS (6)
  - Vitreous opacities [Recovered/Resolved]
  - Iritis [Recovered/Resolved]
  - Visual acuity reduced [Unknown]
  - Ocular hyperaemia [Unknown]
  - Anterior chamber cell [Recovered/Resolved]
  - Keratic precipitates [Recovered/Resolved]

NARRATIVE: CASE EVENT DATE: 20211008
